FAERS Safety Report 4951685-2 (Version None)
Quarter: 2006Q1

REPORT INFORMATION
  Report Type: 
  Country: None (occurrence: None)
  Receive Date: 20060317
  Receipt Date: 20060308
  Transmission Date: 20060701
  Serious: Yes (Other)
  Sender: FDA-Public Use
  Company Number: HQWYE317322MAY03

PATIENT
  Age: 49 Year
  Sex: Male
  Weight: 95.8 kg

DRUGS (16)
  1. MYLOTARG [Suspect]
     Indication: ACUTE MYELOID LEUKAEMIA
     Dosage: 18 MG 1X PER 1 DAY, INTRAVENOUS
     Route: 042
     Dates: start: 20030504, end: 20030504
  2. PERIOGARD (CHLORHEXIDINE GLUCONATE/ETHANOL) [Concomitant]
  3. FLUCONAZOLE [Concomitant]
  4. DILAUDID [Concomitant]
  5. BACLOFEN [Concomitant]
  6. CELEBREX [Concomitant]
  7. PREVACID [Concomitant]
  8. FLAGYL [Concomitant]
  9. ACYCLOVIR [Concomitant]
  10. IMIPENEM (IMIPENEM) [Concomitant]
  11. CALCIUM GLUCONATE [Concomitant]
  12. POTASSIUM (POTASSIUM) [Concomitant]
  13. VANCOMYCIN [Concomitant]
  14. PHENERGAN (DIBROMPROPAMIDINE ISETIONATE/PROMETHAZINE HYDROCHLORIDE) [Concomitant]
  15. ZOFRAN [Concomitant]
  16. SENOKOT [Concomitant]

REACTIONS (13)
  - BLOOD PH DECREASED [None]
  - CHILLS [None]
  - DIZZINESS [None]
  - ELECTROCARDIOGRAM ST SEGMENT DEPRESSION [None]
  - HYPERHIDROSIS [None]
  - HYPERTENSION [None]
  - HYPOTENSION [None]
  - HYPOXIA [None]
  - LOSS OF CONSCIOUSNESS [None]
  - RESPIRATORY RATE INCREASED [None]
  - SINUS TACHYCARDIA [None]
  - SYNCOPE [None]
  - TACHYCARDIA [None]
